FAERS Safety Report 9579986 (Version 1)
Quarter: 2013Q3

REPORT INFORMATION
  Report Type: Spontaneous
  Country: US (occurrence: None)
  Receive Date: 20130930
  Receipt Date: 20130930
  Transmission Date: 20140515
  Serious: Yes (Disabling)
  Sender: FDA-Public Use
  Company Number: None

PATIENT
  Age: 30 Year
  Sex: Female
  Weight: 68.04 kg

DRUGS (2)
  1. OMEPRAZOLE [Suspect]
     Indication: GASTRITIS
     Dosage: 1 PILL ONCE DAILY
     Route: 048
  2. OMEPRAZOLE [Suspect]
     Indication: ABDOMINAL PAIN UPPER
     Dosage: 1 PILL ONCE DAILY
     Route: 048

REACTIONS (10)
  - Nightmare [None]
  - Muscle spasms [None]
  - Pain in extremity [None]
  - Pain in extremity [None]
  - Arthralgia [None]
  - Myalgia [None]
  - Sleep disorder [None]
  - Emotional disorder [None]
  - Mental disorder [None]
  - Distractibility [None]
